APPROVED DRUG PRODUCT: ESTRADIOL AND NORETHINDRONE ACETATE
Active Ingredient: ESTRADIOL; NORETHINDRONE ACETATE
Strength: 0.5MG;0.1MG
Dosage Form/Route: TABLET;ORAL
Application: A200747 | Product #001
Applicant: TEVA PHARMACEUTICALS USA INC
Approved: Mar 8, 2012 | RLD: No | RS: No | Type: DISCN